FAERS Safety Report 6161091-3 (Version None)
Quarter: 2009Q2

REPORT INFORMATION
  Report Type: 
  Country: None (occurrence: None)
  Receive Date: 20090421
  Receipt Date: 20090408
  Transmission Date: 20091009
  Serious: Yes (Life-Threatening, Hospitalization)
  Sender: FDA-Public Use
  Company Number: GB-RANBAXY-2009RR-23349

PATIENT
  Age: 13 Year
  Sex: Female

DRUGS (2)
  1. ACETAMINOPHEN [Suspect]
     Indication: TOOTHACHE
     Dosage: 500 MG, UNK
     Route: 048
  2. ACETAMINOPHEN [Suspect]
     Indication: ORTHODONTIC PROCEDURE
     Dosage: 8000 MG, UNK

REACTIONS (5)
  - ABDOMINAL PAIN [None]
  - ACCIDENTAL OVERDOSE [None]
  - HAEMATEMESIS [None]
  - LIVER INJURY [None]
  - VOMITING [None]
